FAERS Safety Report 9163001 (Version 1)
Quarter: 2013Q1

REPORT INFORMATION
  Report Type: Spontaneous
  Country: AU (occurrence: AU)
  Receive Date: 20130314
  Receipt Date: 20130314
  Transmission Date: 20140127
  Serious: Yes (Death, Other)
  Sender: FDA-Public Use
  Company Number: AU-PFIZER INC-2013073621

PATIENT
  Age: 87 Year
  Sex: Female

DRUGS (1)
  1. MORPHINE SULFATE [Suspect]
     Indication: PAIN
     Dosage: UNK
     Route: 065

REACTIONS (4)
  - Death [Fatal]
  - Hallucination [Unknown]
  - Confusional state [Unknown]
  - Pain [Unknown]
